FAERS Safety Report 10308280 (Version 2)
Quarter: 2015Q3

REPORT INFORMATION
  Report Type: Spontaneous
  Country: GB (occurrence: GB)
  Receive Date: 20140716
  Receipt Date: 20150708
  Transmission Date: 20151125
  Serious: Yes (Death, Hospitalization)
  Sender: FDA-Public Use
  Company Number: GB-BANPHARM-20142855

PATIENT
  Age: 40 Year
  Sex: Male

DRUGS (13)
  1. IBUPROFEN UNKNOWN PRODUCT [Suspect]
     Active Substance: IBUPROFEN
     Indication: ANALGESIC THERAPY
     Dosage: 1200 MG,
     Route: 048
     Dates: start: 20140109
  2. BACLOFEN. [Suspect]
     Active Substance: BACLOFEN
     Indication: MUSCLE SPASTICITY
     Dosage: 60 MG,
     Route: 048
     Dates: start: 20120801, end: 20140120
  3. SERTRALINE [Suspect]
     Active Substance: SERTRALINE HYDROCHLORIDE
     Indication: DEPRESSION
     Dosage: 50 MG,
     Route: 048
     Dates: start: 20121210, end: 20140101
  4. AMLODIPINE [Suspect]
     Active Substance: AMLODIPINE BESYLATE
     Indication: HYPERTENSION
     Dosage: 30 MG,
     Route: 048
     Dates: start: 20120705
  5. RAMIPRIL. [Suspect]
     Active Substance: RAMIPRIL
     Indication: HYPERTENSION
     Dosage: 2.5 MG,
     Route: 048
     Dates: start: 20140113
  6. SILDENAFIL. [Suspect]
     Active Substance: SILDENAFIL
     Indication: ERECTILE DYSFUNCTION
     Dosage: 50 MG, PRN,
     Route: 048
     Dates: start: 20130220
  7. CO-DYDRAMOL [Suspect]
     Active Substance: ACETAMINOPHEN\DIHYDROCODEINE
     Indication: ANALGESIC THERAPY
     Dosage: 2000 MG,
     Route: 048
     Dates: start: 20140109
  8. PARACETAMOL [Suspect]
     Active Substance: ACETAMINOPHEN
     Indication: ANALGESIC THERAPY
     Dosage: 1000 MG, PRN,
     Route: 048
     Dates: start: 20121112
  9. MIRTAZAPINE. [Suspect]
     Active Substance: MIRTAZAPINE
     Dates: start: 20140522
  10. VENLAFAXINE [Suspect]
     Active Substance: VENLAFAXINE HYDROCHLORIDE
     Indication: DEPRESSION
     Dosage: 75 MG,
     Route: 048
     Dates: start: 20140226
  11. METOPROLOL [Suspect]
     Active Substance: METOPROLOL
     Indication: HYPERTENSION
     Dosage: 300 MG,
     Route: 048
     Dates: start: 20120705
  12. LIORESAL [Suspect]
     Active Substance: BACLOFEN
     Indication: MUSCLE SPASTICITY
     Route: 037
  13. ZOPICLONE [Suspect]
     Active Substance: ZOPICLONE
     Indication: INSOMNIA
     Dosage: 3.75 MG,
     Route: 048
     Dates: start: 20130220

REACTIONS (29)
  - Alcohol poisoning [Fatal]
  - Erectile dysfunction [Fatal]
  - Hepatic steatosis [Fatal]
  - Self injurious behaviour [Fatal]
  - Blood ethanol increased [Fatal]
  - Cardiomegaly [Fatal]
  - Fall [Fatal]
  - Pulmonary congestion [Fatal]
  - Scratch [Fatal]
  - Wound dehiscence [Fatal]
  - Anxiety [Fatal]
  - Depression [Fatal]
  - Implant site infection [Fatal]
  - Insomnia [Fatal]
  - Scar [Fatal]
  - Macrophages increased [Fatal]
  - Toxicity to various agents [Fatal]
  - Onychomycosis [Fatal]
  - Pain [Fatal]
  - Petechiae [Fatal]
  - Purulent discharge [Fatal]
  - Condition aggravated [Fatal]
  - Mental disorder [Fatal]
  - Pain in extremity [Fatal]
  - Stress [Fatal]
  - Conjunctival hyperaemia [Fatal]
  - Implant site extravasation [Fatal]
  - Neutrophil count increased [Fatal]
  - Pulmonary oedema [Fatal]
